FAERS Safety Report 8119296-8 (Version None)
Quarter: 2012Q1

REPORT INFORMATION
  Report Type: 
  Country: None (occurrence: None)
  Receive Date: 20120207
  Receipt Date: 20120125
  Transmission Date: 20120608
  Serious: Yes (Other)
  Sender: FDA-Public Use
  Company Number: DE-ELI_LILLY_AND_COMPANY-DE201201007171

PATIENT
  Age: 55 Year
  Sex: Female

DRUGS (1)
  1. ZYPREXA [Suspect]
     Indication: DEPRESSION
     Dosage: UNK
     Route: 048

REACTIONS (2)
  - BREAST CANCER [None]
  - OFF LABEL USE [None]
